FAERS Safety Report 10055675 (Version 1)
Quarter: 2014Q2

REPORT INFORMATION
  Report Type: Spontaneous
  Country: US (occurrence: None)
  Receive Date: 20140402
  Receipt Date: 20140402
  Transmission Date: 20141212
  Serious: No
  Sender: FDA-Public Use
  Company Number: None

PATIENT
  Age: 16 Year
  Sex: Female
  Weight: 68.95 kg

DRUGS (1)
  1. RISPERIDONE [Suspect]
     Indication: AFFECTIVE DISORDER
     Dosage: 1/2 TAB MORNING, 1 TAB IN EVEN, TWICE DAILY, TAKEN BY MOUTH
     Route: 048
     Dates: start: 20140331, end: 20140401

REACTIONS (3)
  - Product substitution issue [None]
  - Memory impairment [None]
  - Speech disorder [None]
